FAERS Safety Report 10695204 (Version 1)
Quarter: 2015Q1

REPORT INFORMATION
  Report Type: Spontaneous
  Country: NL (occurrence: None)
  Receive Date: 20150106
  Receipt Date: 20150106
  Transmission Date: 20150721
  Serious: No
  Sender: FDA-Public Use
  Company Number: NL2014GSK040021

PATIENT
  Age: 67 Year
  Sex: Female

DRUGS (6)
  1. FRAXIPARINE (NADROPARINE CALCIUM) SOLUTION FOR INJECTION [Concomitant]
  2. MACROGOL [Concomitant]
     Active Substance: POLYETHYLENE GLYCOLS
  3. PANTOPRAZOL (PANTOPRAZOLE) [Concomitant]
  4. OXYCODON [Suspect]
     Active Substance: OXYCODONE
     Indication: PROCEDURAL PAIN
     Dates: start: 20141107, end: 20141114
  5. IRBESARTAN + HYDROCHLOROTHIAZIDE [Concomitant]
  6. PAROXETINE [Suspect]
     Active Substance: PAROXETINE\PAROXETINE HYDROCHLORIDE
     Indication: ANXIETY
     Dates: start: 19961223

REACTIONS (2)
  - Serotonin syndrome [None]
  - Drug interaction [None]

NARRATIVE: CASE EVENT DATE: 20141114
